FAERS Safety Report 6304770-7 (Version None)
Quarter: 2009Q3

REPORT INFORMATION
  Report Type: 
  Country: None (occurrence: None)
  Receive Date: 20090811
  Receipt Date: 20090807
  Transmission Date: 20100115
  Serious: No
  Sender: FDA-Public Use
  Company Number: FI-ASTRAZENECA-2009SE07214

PATIENT
  Age: 29029 Day
  Sex: Female

DRUGS (9)
  1. SEROQUEL [Suspect]
     Indication: SCHIZOPHRENIA
     Route: 048
     Dates: start: 20051201, end: 20090724
  2. VESICARE [Concomitant]
     Indication: INCONTINENCE
     Route: 048
  3. SELEXID [Concomitant]
     Indication: PROPHYLAXIS URINARY TRACT INFECTION
     Route: 048
  4. LANSOPRAZOLE HEXAL [Concomitant]
     Route: 048
  5. VESIX [Concomitant]
     Indication: CARDIAC FAILURE
     Route: 048
  6. NITROSID [Concomitant]
     Indication: ANGINA PECTORIS
     Dosage: 5 MG X 1-4
     Route: 048
  7. OPAMOX [Concomitant]
     Indication: SEDATIVE THERAPY
     Dosage: 15 MG X 1/2-1 AS NEEDED
     Route: 048
  8. RISPERDAL [Concomitant]
     Indication: SCHIZOPHRENIA
     Route: 048
     Dates: start: 20040101, end: 20090706
  9. ZELDOX [Concomitant]
     Indication: SCHIZOPHRENIA
     Route: 048
     Dates: start: 20090706

REACTIONS (1)
  - NEUTROPENIA [None]
